FAERS Safety Report 5357529-1 (Version None)
Quarter: 2007Q2

REPORT INFORMATION
  Report Type: 
  Country: None (occurrence: None)
  Receive Date: 20070614
  Receipt Date: 20070604
  Transmission Date: 20071010
  Serious: Yes (Hospitalization)
  Sender: FDA-Public Use
  Company Number: JP-ELI_LILLY_AND_COMPANY-JP200703003625

PATIENT
  Age: 69 Year
  Sex: Female
  Weight: 47 kg

DRUGS (21)
  1. DULOXETINE HYDROCHLORIDE [Suspect]
     Indication: DIABETIC NEUROPATHY
     Dosage: 40 MG, DAILY (1/D)
     Route: 048
     Dates: start: 20060328, end: 20060403
  2. DULOXETINE HYDROCHLORIDE [Suspect]
     Dosage: 60 MG, DAILY (1/D)
     Route: 048
     Dates: start: 20060404, end: 20070305
  3. DULOXETINE HYDROCHLORIDE [Suspect]
     Dosage: 20 MG, DAILY (1/D)
     Route: 048
     Dates: start: 20060321, end: 20060327
  4. DULOXETINE HYDROCHLORIDE [Suspect]
     Dosage: 40 MG, DAILY (1/D)
     Route: 048
     Dates: start: 20070306, end: 20070311
  5. NOVORAPID [Concomitant]
     Indication: DIABETES MELLITUS NON-INSULIN-DEPENDENT
     Dosage: 18 IU, DAILY (1/D)
     Route: 058
  6. MYCOSPOR [Concomitant]
     Indication: NAIL TINEA
     Route: 061
     Dates: end: 20060802
  7. ASTAT [Concomitant]
     Indication: NAIL TINEA
     Route: 061
     Dates: end: 20060630
  8. SLOW-K [Concomitant]
     Indication: MINERAL SUPPLEMENTATION
     Dosage: 600 MG, DAILY (1/D)
     Route: 048
  9. TEPRENONE [Concomitant]
     Indication: GASTROINTESTINAL MUCOSAL DISORDER
     Dosage: 150 MG, DAILY (1/D)
     Route: 048
  10. KETOPROFEN [Concomitant]
     Indication: OSTEOARTHRITIS
     Route: 061
  11. DERMOVATE [Concomitant]
     Indication: HYPERKERATOSIS PALMARIS AND PLANTARIS
     Route: 061
     Dates: end: 20060705
  12. KARY UNI [Concomitant]
     Indication: CATARACT
     Route: 047
  13. SENNARIDE [Concomitant]
     Indication: CONSTIPATION
     Dosage: 24 MG, DAILY (1/D)
     Route: 048
  14. CILOSTATE [Concomitant]
     Indication: THROMBOSIS PROPHYLAXIS
     Dosage: 100 MG, DAILY (1/D)
     Route: 048
  15. NORVASC [Concomitant]
     Indication: HYPERTENSION
     Dosage: 2.5 MG, DAILY (1/D)
     Route: 048
  16. BLOPRESS [Concomitant]
     Indication: HYPERTENSION
     Dosage: 8 MG, DAILY (1/D)
     Route: 048
  17. BUFFERIN [Concomitant]
     Indication: THROMBOSIS PROPHYLAXIS
     Dosage: 81 MG, DAILY (1/D)
     Route: 048
  18. KERATINAMIN [Concomitant]
     Indication: HYPERKERATOSIS PALMARIS AND PLANTARIS
     Route: 061
     Dates: end: 20060625
  19. RINDERON [Concomitant]
     Indication: FOLLICULITIS
     Route: 061
     Dates: start: 20060120, end: 20060331
  20. NOVOLIN 50/50 [Concomitant]
     Indication: DIABETES MELLITUS NON-INSULIN-DEPENDENT
     Dosage: 6 IU, DAILY (1/D)
     Route: 058
  21. SYMMETREL [Concomitant]
     Indication: CEREBRAL INFARCTION
     Dosage: 100 MG, DAILY (1/D)
     Route: 048
     Dates: start: 20070205

REACTIONS (6)
  - LEIOMYOMA [None]
  - METASTASES TO LIVER [None]
  - METASTASES TO LUNG [None]
  - NECROSIS [None]
  - RECTAL CANCER [None]
  - SALPINGO-OOPHORECTOMY BILATERAL [None]
